FAERS Safety Report 24077375 (Version 1)
Quarter: 2024Q3

REPORT INFORMATION
  Report Type: Spontaneous
  Country: US (occurrence: US)
  Receive Date: 20240711
  Receipt Date: 20240711
  Transmission Date: 20241017
  Serious: No
  Sender: PIERRE FABRE MEDICAMENT
  Company Number: US-PFM-2023-04165

PATIENT
  Sex: Male
  Weight: 8.6 kg

DRUGS (4)
  1. HEMANGEOL [Suspect]
     Active Substance: PROPRANOLOL HYDROCHLORIDE
     Indication: Haemangioma
     Dosage: 2.8 ML, BID (2/DAY)
     Route: 048
  2. HEMANGEOL [Suspect]
     Active Substance: PROPRANOLOL HYDROCHLORIDE
     Dosage: 1.1 ML, DAILY
     Route: 048
  3. HEMANGEOL [Suspect]
     Active Substance: PROPRANOLOL HYDROCHLORIDE
     Dosage: 2.5ML IN THE MORNING AND 1.5ML IN THE EVENING
     Route: 048
  4. HEMANGEOL [Suspect]
     Active Substance: PROPRANOLOL HYDROCHLORIDE
     Dosage: 3.4 ML BY MOUTH IN THE MORNING AND 1.5 ML BY MOUTH AT DINNER
     Route: 048

REACTIONS (7)
  - Drug intolerance [Unknown]
  - Gastrointestinal disorder [Unknown]
  - Illness [Recovering/Resolving]
  - Insomnia [Unknown]
  - Incorrect dose administered [Unknown]
  - Product administered to patient of inappropriate age [Unknown]
  - Off label use [Unknown]
